FAERS Safety Report 15773160 (Version 3)
Quarter: 2019Q1

REPORT INFORMATION
  Report Type: Spontaneous
  Country: US (occurrence: US)
  Receive Date: 20181228
  Receipt Date: 20190114
  Transmission Date: 20190417
  Serious: Yes (Hospitalization)
  Sender: FDA-Public Use
  Company Number: US-UNITED THERAPEUTICS-UNT-2018-021376

PATIENT
  Sex: Male
  Weight: 97.51 kg

DRUGS (2)
  1. PLO GEL MEDIFLO [Suspect]
     Active Substance: LECITHIN\POLOXAMER 407
     Indication: INFUSION SITE PAIN
     Dosage: UNK
     Route: 065
     Dates: start: 201812
  2. REMODULIN [Suspect]
     Active Substance: TREPROSTINIL
     Indication: PULMONARY ARTERIAL HYPERTENSION
     Dosage: 0.014 ?G/KG, CONTINUING
     Route: 058
     Dates: start: 20181116

REACTIONS (5)
  - Infusion site pain [Not Recovered/Not Resolved]
  - Infusion site dryness [Unknown]
  - Infusion site irritation [Unknown]
  - Infusion site erythema [Not Recovered/Not Resolved]
  - Infusion site bruising [Unknown]

NARRATIVE: CASE EVENT DATE: 2018
